FAERS Safety Report 26049526 (Version 1)
Quarter: 2025Q4

REPORT INFORMATION
  Report Type: Spontaneous
  Country: US (occurrence: US)
  Receive Date: 20251115
  Receipt Date: 20251115
  Transmission Date: 20260117
  Serious: No
  Sender: SANOFI AVENTIS
  Company Number: US-SA-2025SA339203

PATIENT
  Sex: Female

DRUGS (10)
  1. DUPIXENT [Suspect]
     Active Substance: DUPILUMAB
     Indication: Neurodermatitis
     Dosage: 600 MG, 1X
     Route: 058
  2. AMLODIPINE BESYLATE [Concomitant]
     Active Substance: AMLODIPINE BESYLATE
  3. CEFDINIR [Concomitant]
     Active Substance: CEFDINIR
  4. CYPROHEPTADINE HYDROCHLORIDE [Concomitant]
     Active Substance: CYPROHEPTADINE HYDROCHLORIDE
  5. HYDROXYZINE [Concomitant]
     Active Substance: HYDROXYZINE HYDROCHLORIDE
  6. LEVOTHYROXINE [Concomitant]
     Active Substance: LEVOTHYROXINE
  7. MNEXSPIKE 2024-2025 FORMULA [Concomitant]
  8. VITAMINS NOS [Concomitant]
     Active Substance: VITAMINS
  9. TYLENOL [Concomitant]
     Active Substance: ACETAMINOPHEN
  10. VALSARTAN [Concomitant]
     Active Substance: VALSARTAN

REACTIONS (2)
  - Pruritus [Unknown]
  - Urticaria [Unknown]
